FAERS Safety Report 5258792-8 (Version None)
Quarter: 2007Q1

REPORT INFORMATION
  Report Type: 
  Country: None (occurrence: None)
  Receive Date: 20070306
  Receipt Date: 20070306
  Transmission Date: 20070707
  Serious: Yes (Hospitalization)
  Sender: FDA-Public Use
  Company Number: None

PATIENT
  Age: 49 Year
  Sex: Male
  Weight: 72.6 kg

DRUGS (5)
  1. ALIMTA [Suspect]
     Indication: THYMOMA
     Dosage: 400MG/M2 IV Q2 WEEKS
     Route: 042
     Dates: start: 20070104, end: 20070215
  2. TAXOTERE [Suspect]
     Dosage: 30MG/M2 IV Q2 WEEKS
     Route: 042
     Dates: start: 20070104, end: 20070215
  3. ACIPHEX [Concomitant]
  4. FOLIC ACID [Concomitant]
  5. VITAMIN B-12 [Concomitant]

REACTIONS (7)
  - BUNDLE BRANCH BLOCK RIGHT [None]
  - DYSPNOEA [None]
  - ELECTROCARDIOGRAM ABNORMAL [None]
  - ELECTROCARDIOGRAM POOR R-WAVE PROGRESSION [None]
  - ELECTROCARDIOGRAM Q WAVES [None]
  - PALPITATIONS [None]
  - TROPONIN INCREASED [None]
